FAERS Safety Report 5526422-3 (Version None)
Quarter: 2007Q4

REPORT INFORMATION
  Report Type: 
  Country: None (occurrence: None)
  Receive Date: 20071121
  Receipt Date: 20071121
  Transmission Date: 20080405
  Serious: Yes (Hospitalization)
  Sender: FDA-Public Use
  Company Number: None

PATIENT
  Age: 80 Year
  Sex: Male

DRUGS (1)
  1. PACLITAXEL [Suspect]
     Indication: PROSTATE CANCER
     Dosage: 149MG ONCE IV
     Route: 042
     Dates: start: 20070122, end: 20070122

REACTIONS (6)
  - ANGIOEDEMA [None]
  - COUGH [None]
  - DRUG HYPERSENSITIVITY [None]
  - HYPERTENSION [None]
  - TACHYCARDIA [None]
  - WHEEZING [None]
